FAERS Safety Report 13228686 (Version 6)
Quarter: 2017Q4

REPORT INFORMATION
  Report Type: Spontaneous
  Country: US (occurrence: US)
  Receive Date: 20170213
  Receipt Date: 20171123
  Transmission Date: 20180320
  Serious: Yes (Other)
  Sender: FDA-Public Use
  Company Number: US-ABBVIE-17P-163-1864976-00

PATIENT
  Sex: Male

DRUGS (1)
  1. CREON [Suspect]
     Active Substance: PANCRELIPASE AMYLASE\PANCRELIPASE LIPASE\PANCRELIPASE PROTEASE
     Indication: PRODUCT USED FOR UNKNOWN INDICATION
     Route: 065

REACTIONS (21)
  - Pain [Unknown]
  - Pain [Not Recovered/Not Resolved]
  - Pancreatic failure [Unknown]
  - Weight decreased [Recovered/Resolved]
  - Neuropathy peripheral [Unknown]
  - Pancreatectomy [Unknown]
  - Hernia [Recovered/Resolved]
  - Anal incontinence [Recovered/Resolved]
  - Fatigue [Recovered/Resolved]
  - Ulcer [Recovered/Resolved]
  - Vomiting [Unknown]
  - Therapeutic response delayed [Recovered/Resolved]
  - Diabetes mellitus [Unknown]
  - Pancreatic carcinoma [Unknown]
  - Emotional distress [Recovered/Resolved]
  - Dyspnoea [Unknown]
  - Dyspepsia [Recovered/Resolved]
  - Vision blurred [Recovered/Resolved]
  - Blood glucose increased [Unknown]
  - Incontinence [Recovered/Resolved]
  - Nausea [Not Recovered/Not Resolved]

NARRATIVE: CASE EVENT DATE: 201001
